FAERS Safety Report 8090482 (Version 7)
Quarter: 2014Q3

REPORT INFORMATION
  Report Type: Spontaneous
  Country: US (occurrence: US)
  Receive Date: 20110815
  Receipt Date: 20140909
  Transmission Date: 20150326
  Serious: Yes (Hospitalization, Other)
  Sender: FDA-Public Use
  Company Number: US-ASTRAZENECA-2011SE47342

PATIENT
  Age: 65 Year
  Sex: Female
  Weight: 62.1 kg

DRUGS (24)
  1. CALCIUM [Concomitant]
     Active Substance: CALCIUM
     Indication: OSTEOGENESIS IMPERFECTA
  2. NEXIUM [Suspect]
     Active Substance: ESOMEPRAZOLE MAGNESIUM
     Route: 048
     Dates: start: 20140802
  3. PLAVIX [Concomitant]
     Active Substance: CLOPIDOGREL BISULFATE
  4. VICODIN [Concomitant]
     Active Substance: ACETAMINOPHEN\HYDROCODONE BITARTRATE
  5. DICYCLOMINE [Concomitant]
     Active Substance: DICYCLOMINE HYDROCHLORIDE
  6. BENTYL [Concomitant]
     Active Substance: DICYCLOMINE HYDROCHLORIDE
     Indication: MUSCLE SPASMS
     Dates: start: 2013
  7. IMDUR CR [Concomitant]
     Indication: BLOOD PRESSURE ABNORMAL
     Dates: start: 2009
  8. NEXIUM [Suspect]
     Active Substance: ESOMEPRAZOLE MAGNESIUM
     Indication: OBSTRUCTION GASTRIC
     Route: 048
     Dates: end: 20140802
  9. LIDOCAINE. [Concomitant]
     Active Substance: LIDOCAINE
  10. COREG [Concomitant]
     Active Substance: CARVEDILOL
     Indication: CARDIAC DISORDER
  11. IMDUR CR [Concomitant]
     Indication: CARDIAC DISORDER
     Dates: start: 2009
  12. ASPIRIN. [Concomitant]
     Active Substance: ASPIRIN
     Indication: CARDIAC DISORDER
  13. NEXIUM [Suspect]
     Active Substance: ESOMEPRAZOLE MAGNESIUM
     Indication: GASTRIC OPERATION
     Route: 048
     Dates: end: 20140802
  14. VIT B-12 [Concomitant]
  15. ZOFRAN [Concomitant]
     Active Substance: ONDANSETRON HYDROCHLORIDE
     Indication: NAUSEA
  16. CYMBALTA [Concomitant]
     Active Substance: DULOXETINE HYDROCHLORIDE
     Indication: FIBROMYALGIA
     Dates: start: 2013
  17. MEGASE [Concomitant]
  18. DIAZEPAM. [Concomitant]
     Active Substance: DIAZEPAM
  19. VIT.D [Concomitant]
  20. ATIVAN [Concomitant]
     Active Substance: LORAZEPAM
     Indication: ANXIETY
  21. NEXIUM [Suspect]
     Active Substance: ESOMEPRAZOLE MAGNESIUM
     Indication: GASTRIC OPERATION
     Route: 048
     Dates: start: 2009
  22. NEXIUM [Suspect]
     Active Substance: ESOMEPRAZOLE MAGNESIUM
     Indication: OBSTRUCTION GASTRIC
     Route: 048
     Dates: start: 2009
  23. BENTIN [Suspect]
     Active Substance: UNSPECIFIED INGREDIENT
     Route: 065
  24. LASIX [Concomitant]
     Active Substance: FUROSEMIDE
     Indication: SWELLING

REACTIONS (36)
  - Hypovitaminosis [Unknown]
  - Pain [Unknown]
  - Foot deformity [Unknown]
  - Aphagia [None]
  - Gastric disorder [Unknown]
  - Respiratory disorder [Unknown]
  - Dizziness [Unknown]
  - Cardiac disorder [Unknown]
  - Vomiting [Unknown]
  - Drug hypersensitivity [Unknown]
  - Drug dose omission [Unknown]
  - Drug ineffective [Unknown]
  - Mental impairment [None]
  - Blood 25-hydroxycholecalciferol decreased [None]
  - Hip fracture [Unknown]
  - Mental impairment [Unknown]
  - Body height decreased [Not Recovered/Not Resolved]
  - Gait disturbance [Unknown]
  - Drug prescribing error [Unknown]
  - Malaise [None]
  - Weight decreased [Unknown]
  - Myocardial infarction [Unknown]
  - Neuropathy peripheral [Unknown]
  - Malaise [Unknown]
  - Intentional product misuse [Unknown]
  - Hernia [Unknown]
  - Intestinal prolapse [Unknown]
  - Aphagia [Unknown]
  - Gastrooesophageal reflux disease [Unknown]
  - Drug hypersensitivity [None]
  - Hand fracture [Unknown]
  - Arthritis [Unknown]
  - Cardiac failure congestive [Unknown]
  - Bronchitis [Unknown]
  - Epistaxis [Unknown]
  - Off label use [Unknown]

NARRATIVE: CASE EVENT DATE: 2009
